FAERS Safety Report 5490194-1 (Version None)
Quarter: 2007Q4

REPORT INFORMATION
  Report Type: 
  Country: None (occurrence: None)
  Receive Date: 20071017
  Receipt Date: 20071002
  Transmission Date: 20080405
  Serious: Yes (Other)
  Sender: FDA-Public Use
  Company Number: 2007S1009361

PATIENT
  Age: 43 Year
  Sex: Male
  Weight: 68.0396 kg

DRUGS (2)
  1. PHENYTOIN SODIUM [Suspect]
     Indication: GRAND MAL CONVULSION
     Dosage: 300 MG;DAILY;ORAL
     Route: 048
     Dates: start: 20061101, end: 20070802
  2. DILANTIN [Concomitant]

REACTIONS (6)
  - DRUG INEFFECTIVE [None]
  - DRUG LEVEL DECREASED [None]
  - FALL [None]
  - GRAND MAL CONVULSION [None]
  - SKIN LACERATION [None]
  - THERAPEUTIC RESPONSE UNEXPECTED WITH DRUG SUBSTITUTION [None]
